FAERS Safety Report 7470421-1 (Version None)
Quarter: 2011Q2

REPORT INFORMATION
  Report Type: 
  Country: None (occurrence: None)
  Receive Date: 20110510
  Receipt Date: 20110325
  Transmission Date: 20111010
  Serious: Yes (Other)
  Sender: FDA-Public Use
  Company Number: US-BAYER-201038429NA

PATIENT
  Age: 24 Year
  Sex: Female

DRUGS (12)
  1. DIFFERIN [Concomitant]
     Route: 061
  2. NICOMIDE [Concomitant]
  3. DICYCLOMINE [Concomitant]
  4. RETIN-A [Concomitant]
     Route: 061
  5. YAZ [Suspect]
     Indication: ACNE
     Dosage: UNK UNK, QD
     Dates: start: 20030508
  6. YASMIN [Suspect]
     Indication: ACNE
     Dosage: UNK UNK, QD
     Dates: start: 20030508
  7. BACTRIM DS [Concomitant]
     Dosage: UNK UNK, BID
     Route: 048
  8. HYDROCODONE BITARTRATE [Concomitant]
  9. PROMETHAZINE [Concomitant]
  10. DROSPIRENONE AND ETHINYL ESTRADIOL [Suspect]
     Indication: PRODUCT USED FOR UNKNOWN INDICATION
     Dates: start: 20030508
  11. PLEXION [Concomitant]
     Route: 061
  12. ANTIBIOTICS [Concomitant]

REACTIONS (6)
  - GALLBLADDER INJURY [None]
  - CHOLESTEROSIS [None]
  - ABDOMINAL PAIN UPPER [None]
  - CHOLELITHIASIS [None]
  - NAUSEA [None]
  - POST CHOLECYSTECTOMY SYNDROME [None]
